FAERS Safety Report 9110045 (Version 2)
Quarter: 2013Q2

REPORT INFORMATION
  Report Type: Report from Study
  Country: JP (occurrence: JP)
  Receive Date: 20130222
  Receipt Date: 20130521
  Transmission Date: 20140414
  Serious: Yes (Hospitalization)
  Sender: FDA-Public Use
  Company Number: JP-ROCHE-1193107

PATIENT
  Age: 65 Year
  Sex: Female
  Weight: 44 kg

DRUGS (7)
  1. PEG-INTERFERON ALFA 2A [Suspect]
     Indication: HEPATIC CIRRHOSIS
     Route: 058
     Dates: start: 20120515, end: 20120823
  2. RIBAVIRIN [Suspect]
     Indication: HEPATIC CIRRHOSIS
     Route: 048
     Dates: start: 20120515, end: 20120827
  3. AMINOLEBAN [Concomitant]
     Route: 048
  4. TAKEPRON [Concomitant]
     Route: 048
  5. LACTULOSE [Concomitant]
     Route: 048
  6. URSO [Concomitant]
     Indication: HEPATIC CIRRHOSIS
     Route: 048
  7. NORVASC [Concomitant]
     Route: 048

REACTIONS (4)
  - Ascites [Recovered/Resolved]
  - Portal vein thrombosis [Recovered/Resolved]
  - Haemoglobin decreased [Recovered/Resolved]
  - Neutrophil count decreased [Recovered/Resolved]
